FAERS Safety Report 16061604 (Version 1)
Quarter: 2019Q1

REPORT INFORMATION
  Report Type: Spontaneous
  Country: US (occurrence: US)
  Receive Date: 20190312
  Receipt Date: 20190312
  Transmission Date: 20190418
  Serious: No
  Sender: FDA-Public Use
  Company Number: US-PFIZER INC-2019094183

PATIENT
  Age: 35 Year
  Sex: Male
  Weight: 88.89 kg

DRUGS (3)
  1. DEPO-TESTOSTERONE [Suspect]
     Active Substance: TESTOSTERONE CYPIONATE
     Dosage: UNK
  2. DEPO-TESTOSTERONE [Suspect]
     Active Substance: TESTOSTERONE CYPIONATE
     Indication: HYPOGONADISM
     Dosage: 1 ML, ONCE EVERY 2 WEEKS
     Dates: start: 2018
  3. DEPO-TESTOSTERONE [Suspect]
     Active Substance: TESTOSTERONE CYPIONATE
     Indication: BLOOD TESTOSTERONE DECREASED
     Dosage: UNK

REACTIONS (6)
  - Fatigue [Unknown]
  - Injection site mass [Unknown]
  - Blood testosterone increased [Unknown]
  - Lethargy [Unknown]
  - Insomnia [Unknown]
  - Injection site pain [Unknown]
